FAERS Safety Report 13688723 (Version 1)
Quarter: 2017Q2

REPORT INFORMATION
  Report Type: Spontaneous
  Country: US (occurrence: US)
  Receive Date: 20170623
  Receipt Date: 20170623
  Transmission Date: 20170830
  Serious: Yes (Hospitalization, Disabling, Other)
  Sender: FDA-Public Use
  Company Number: None

PATIENT
  Age: 34 Year
  Sex: Male

DRUGS (4)
  1. ATIVAN [Suspect]
     Active Substance: LORAZEPAM
     Indication: PARANOIA
  2. KLONOPIN [Suspect]
     Active Substance: CLONAZEPAM
     Indication: PARANOIA
     Dosage: ?          QUANTITY:2 TABLET(S);?
     Route: 048
  3. ATIVAN [Suspect]
     Active Substance: LORAZEPAM
     Indication: ANXIETY
  4. KLONOPIN [Suspect]
     Active Substance: CLONAZEPAM
     Indication: ANXIETY
     Dosage: ?          QUANTITY:2 TABLET(S);?
     Route: 048

REACTIONS (5)
  - Withdrawal syndrome [None]
  - Paranoia [None]
  - Feeling abnormal [None]
  - Anxiety [None]
  - Confusional state [None]
